FAERS Safety Report 20080227 (Version 3)
Quarter: 2022Q1

REPORT INFORMATION
  Report Type: Report from Study
  Country: US (occurrence: None)
  Receive Date: 20211117
  Receipt Date: 20220104
  Transmission Date: 20220424
  Serious: Yes (Other)
  Sender: FDA-Public Use
  Company Number: US-Merck Healthcare KGaA-9279514

PATIENT
  Age: 55 Year
  Sex: Female

DRUGS (1)
  1. REBIF [Suspect]
     Active Substance: INTERFERON BETA-1A
     Indication: Product used for unknown indication
     Route: 058
     Dates: start: 20170403

REACTIONS (3)
  - Benign neoplasm [Recovering/Resolving]
  - Gait disturbance [Unknown]
  - Posture abnormal [Unknown]

NARRATIVE: CASE EVENT DATE: 20210601
